FAERS Safety Report 21719891 (Version 1)
Quarter: 2022Q4

REPORT INFORMATION
  Report Type: Other
  Country: CA (occurrence: CA)
  Receive Date: 20221213
  Receipt Date: 20221213
  Transmission Date: 20230113
  Serious: Yes (Death, Other)
  Sender: FDA-Public Use
  Company Number: CA-HLS-202107434

PATIENT

DRUGS (10)
  1. CLOZAPINE [Suspect]
     Active Substance: CLOZAPINE
     Indication: Obsessive-compulsive disorder
     Route: 065
  2. CLOZAPINE [Suspect]
     Active Substance: CLOZAPINE
     Indication: Schizophrenia
     Route: 065
  3. CLOZAPINE [Suspect]
     Active Substance: CLOZAPINE
     Indication: Obsessive-compulsive disorder
     Dosage: DOSE INCRAESED
     Route: 048
  4. CLOZAPINE [Suspect]
     Active Substance: CLOZAPINE
     Indication: Schizophrenia
     Dosage: DOSE INCRAESED
     Route: 048
  5. CLOZAPINE [Suspect]
     Active Substance: CLOZAPINE
     Indication: Obsessive-compulsive disorder
     Dosage: DOSE INCREASED
     Route: 048
  6. CLOZAPINE [Suspect]
     Active Substance: CLOZAPINE
     Indication: Schizophrenia
     Dosage: DOSE INCREASED
     Route: 048
  7. Fuvoxamine [Concomitant]
     Indication: Obsessive-compulsive disorder
     Route: 065
  8. Fuvoxamine [Concomitant]
     Indication: Schizophrenia
     Route: 065
  9. Fuvoxamine [Concomitant]
     Indication: Obsessive-compulsive disorder
     Route: 065
  10. Fuvoxamine [Concomitant]
     Indication: Schizophrenia
     Route: 065

REACTIONS (10)
  - Psychotic disorder [Unknown]
  - Bradycardia [Unknown]
  - Death [Fatal]
  - Deep vein thrombosis [Fatal]
  - Emotional distress [Unknown]
  - Hypotension [Unknown]
  - Pneumonia [Fatal]
  - Pulmonary embolism [Fatal]
  - Serotonin syndrome [Unknown]
  - Medication error [Unknown]
